FAERS Safety Report 8273776-3 (Version None)
Quarter: 2012Q2

REPORT INFORMATION
  Report Type: 
  Country: None (occurrence: None)
  Receive Date: 20120411
  Receipt Date: 20120405
  Transmission Date: 20120825
  Serious: Yes (Hospitalization, Other)
  Sender: FDA-Public Use
  Company Number: US-BAYER-2011-078909

PATIENT
  Age: 48 Year
  Sex: Female
  Weight: 90 kg

DRUGS (6)
  1. ASPIRIN [Concomitant]
     Dosage: 81 MG DAILY FOR 4 DAYS
     Route: 048
     Dates: start: 20080602
  2. TRIAMTERENE [Concomitant]
     Dosage: 37.5 MG / 25 MG DAILY
     Route: 048
     Dates: start: 20080602
  3. VITAMIN B-12 [Concomitant]
     Dosage: 1 TABLET DAILY
     Route: 048
     Dates: start: 20080602
  4. CLOPIDOGREL [Concomitant]
     Dosage: 75 MG DAILY FOR 4 DAYS
     Route: 048
     Dates: start: 20080602
  5. NORVASC [Concomitant]
     Dosage: 5 MG, DAILY
     Route: 048
     Dates: start: 20080602
  6. YAZ [Suspect]
     Dosage: UNK
     Dates: start: 19990101, end: 20070101

REACTIONS (3)
  - MYOCARDIAL INFARCTION [None]
  - CEREBROVASCULAR ACCIDENT [None]
  - THROMBOSIS [None]
